FAERS Safety Report 20309119 (Version 1)
Quarter: 2022Q1

REPORT INFORMATION
  Report Type: Spontaneous
  Country: US (occurrence: None)
  Receive Date: 20220106
  Receipt Date: 20220106
  Transmission Date: 20220424
  Serious: Yes (Other)
  Sender: FDA-Public Use
  Company Number: None

PATIENT
  Age: 69 Year
  Sex: Male

DRUGS (1)
  1. CYCLOPHOSPHAMIDE [Suspect]
     Active Substance: CYCLOPHOSPHAMIDE
     Dosage: 25 MG DAILY PO?
     Route: 048
     Dates: start: 20210716, end: 202108

REACTIONS (2)
  - Nausea [None]
  - Constipation [None]

NARRATIVE: CASE EVENT DATE: 20210801
